FAERS Safety Report 24295437 (Version 1)
Quarter: 2024Q3

REPORT INFORMATION
  Report Type: Spontaneous
  Country: US (occurrence: US)
  Receive Date: 20240908
  Receipt Date: 20240908
  Transmission Date: 20241017
  Serious: No
  Sender: ASTELLAS
  Company Number: US-ASTELLAS-2024US022822

PATIENT
  Age: 92 Year
  Sex: Male

DRUGS (3)
  1. XTANDI [Suspect]
     Active Substance: ENZALUTAMIDE
     Indication: Prostatic specific antigen increased
     Dosage: 4 TABLETS OF 40 MG DAILY (2 IN AM AND 2 IN PM)
     Route: 065
     Dates: start: 20240807
  2. XTANDI [Suspect]
     Active Substance: ENZALUTAMIDE
     Dosage: 2 TABLETS OF 40 MG DAILY (1 IN AM AND 1 IN PM)
     Route: 050
  3. LUPRON [Concomitant]
     Active Substance: LEUPROLIDE ACETATE
     Indication: Product used for unknown indication
     Route: 065

REACTIONS (3)
  - Dizziness [Unknown]
  - Balance disorder [Unknown]
  - Inappropriate schedule of product administration [Unknown]

NARRATIVE: CASE EVENT DATE: 20240801
